FAERS Safety Report 19958995 (Version 1)
Quarter: 2021Q4

REPORT INFORMATION
  Report Type: Spontaneous
  Country: US (occurrence: US)
  Receive Date: 20211012
  Receipt Date: 20211012
  Transmission Date: 20220304
  Serious: No
  Sender: FDA-Public Use
  Company Number: None

PATIENT
  Sex: Male

DRUGS (1)
  1. HUMIRA [Suspect]
     Active Substance: ADALIMUMAB
     Indication: Illness
     Route: 058
     Dates: start: 202105

REACTIONS (4)
  - Drug ineffective [None]
  - Diarrhoea [None]
  - Nausea [None]
  - Abdominal pain upper [None]
